FAERS Safety Report 7478502-3 (Version None)
Quarter: 2011Q2

REPORT INFORMATION
  Report Type: 
  Country: None (occurrence: None)
  Receive Date: 20110513
  Receipt Date: 20110506
  Transmission Date: 20111010
  Serious: Yes (Other)
  Sender: FDA-Public Use
  Company Number: PHHY2011ES38329

PATIENT
  Age: 28 Year
  Sex: Female

DRUGS (2)
  1. TRILEPTAL [Suspect]
     Indication: BORDERLINE PERSONALITY DISORDER
     Dosage: 1800 MG, DAILY
     Route: 048
     Dates: start: 20050101, end: 20101001
  2. SERTRALINE HYDROCHLORIDE [Interacting]
     Indication: BORDERLINE PERSONALITY DISORDER
     Dosage: 200 MG, DAILY
     Route: 048
     Dates: start: 20100701, end: 20101001

REACTIONS (3)
  - INAPPROPRIATE ANTIDIURETIC HORMONE SECRETION [None]
  - HYPONATRAEMIA [None]
  - DRUG INTERACTION [None]
